FAERS Safety Report 8925484 (Version 1)
Quarter: 2012Q4

REPORT INFORMATION
  Report Type: Spontaneous
  Country: US (occurrence: None)
  Receive Date: 20121126
  Receipt Date: 20121126
  Transmission Date: 20130627
  Serious: Yes (Life-Threatening)
  Sender: FDA-Public Use
  Company Number: None

PATIENT
  Age: 58 Year
  Sex: Female
  Weight: 97.52 kg

DRUGS (1)
  1. DEXILANT TAKEDA [Suspect]
     Indication: GERD
     Dosage: 1 per day
     Dates: start: 20110401, end: 20110701

REACTIONS (6)
  - Nausea [None]
  - Diarrhoea [None]
  - Decreased appetite [None]
  - Asthenia [None]
  - Influenza [None]
  - Apparent death [None]
